FAERS Safety Report 7725444-1 (Version None)
Quarter: 2011Q3

REPORT INFORMATION
  Report Type: 
  Country: None (occurrence: None)
  Receive Date: 20110902
  Receipt Date: 20110823
  Transmission Date: 20111222
  Serious: Yes (Hospitalization)
  Sender: FDA-Public Use
  Company Number: NZ-JNJFOC-20110602628

PATIENT
  Sex: Male
  Weight: 115 kg

DRUGS (18)
  1. SIMVASTATIN [Concomitant]
     Indication: CARDIAC DISORDER
     Route: 048
     Dates: start: 20090927
  2. CALCIUM CARBONATE [Concomitant]
     Route: 048
     Dates: start: 20020710
  3. METHOTREXATE [Concomitant]
     Route: 048
     Dates: start: 20051114
  4. INHIBACE [Concomitant]
     Route: 048
     Dates: start: 20061031
  5. METFORMIN [Concomitant]
     Route: 048
     Dates: start: 20080320
  6. MORPHINE SULFATE [Concomitant]
     Indication: OSTEOARTHRITIS
     Route: 048
     Dates: start: 20101027, end: 20110501
  7. GOLIMUMAB [Suspect]
     Indication: RHEUMATOID ARTHRITIS
     Route: 058
     Dates: start: 20060829
  8. NAPROXEN [Concomitant]
     Indication: OSTEOARTHRITIS
     Route: 048
     Dates: start: 20101213, end: 20110501
  9. FOLIC ACID [Concomitant]
     Route: 048
     Dates: start: 20001228
  10. PIROXICAM [Concomitant]
     Route: 048
     Dates: start: 20040114
  11. GOLIMUMAB [Suspect]
     Route: 058
     Dates: start: 20110407
  12. DILTIAZEM CD [Concomitant]
     Indication: CARDIAC DISORDER
     Route: 048
     Dates: start: 20090927
  13. MULTIVITE SIX [Concomitant]
     Route: 048
     Dates: start: 20020710
  14. OMEPRAZOLE [Concomitant]
     Route: 048
     Dates: start: 20020710
  15. ACETAMINOPHEN W/ CODEINE [Concomitant]
     Indication: OSTEOARTHRITIS
     Route: 048
     Dates: start: 20100829, end: 20110501
  16. ACETAMINOPHEN [Concomitant]
     Indication: OSTEOARTHRITIS
     Route: 048
     Dates: start: 20100829
  17. SULFASALAZINE [Concomitant]
     Route: 048
     Dates: start: 19970611
  18. SPIRIVA [Concomitant]
     Dates: start: 20110106

REACTIONS (2)
  - CELLULITIS [None]
  - OSTEOARTHRITIS [None]
